FAERS Safety Report 8577293-2 (Version None)
Quarter: 2012Q3

REPORT INFORMATION
  Report Type: 
  Country: None (occurrence: None)
  Receive Date: 20120807
  Receipt Date: 20120726
  Transmission Date: 20120928
  Serious: Yes (Hospitalization, Disabling, Other)
  Sender: FDA-Public Use
  Company Number: US-009507513-1104USA03485

PATIENT

DRUGS (3)
  1. FOSAMAX [Suspect]
     Indication: PRODUCT USED FOR UNKNOWN INDICATION
     Dosage: 10 MG, UNK
     Route: 048
     Dates: start: 19990921, end: 20030508
  2. FOSAMAX [Suspect]
     Route: 048
     Dates: start: 20080623, end: 20090321
  3. THERAPY UNSPECIFIED [Concomitant]
     Indication: HYPERTENSION
     Dates: start: 19970101, end: 20090701

REACTIONS (48)
  - FEMUR FRACTURE [None]
  - EPISTAXIS [None]
  - DERMAL CYST [None]
  - CYSTITIS [None]
  - HEADACHE [None]
  - HIATUS HERNIA [None]
  - TOOTH DISORDER [None]
  - INSOMNIA [None]
  - HYPOVOLAEMIA [None]
  - TRAUMATIC HAEMATOMA [None]
  - CEREBRAL DISORDER [None]
  - PAIN IN EXTREMITY [None]
  - CROHN'S DISEASE [None]
  - REPRODUCTIVE TRACT DISORDER [None]
  - DIZZINESS [None]
  - DIARRHOEA [None]
  - MUSCULOSKELETAL CHEST PAIN [None]
  - DUODENAL ULCER [None]
  - TOOTHACHE [None]
  - MASS [None]
  - EXOSTOSIS [None]
  - HAEMOGLOBIN DECREASED [None]
  - GASTROINTESTINAL HAEMORRHAGE [None]
  - BRONCHITIS [None]
  - CONTUSION [None]
  - PELVIC MASS [None]
  - CHEILITIS [None]
  - HAND FRACTURE [None]
  - AORTIC VALVE STENOSIS [None]
  - CELLULITIS [None]
  - TOOTH ABSCESS [None]
  - DIABETES MELLITUS [None]
  - ABDOMINAL MASS [None]
  - TREATMENT NONCOMPLIANCE [None]
  - HELICOBACTER TEST POSITIVE [None]
  - ORAL PAIN [None]
  - HORMONE LEVEL ABNORMAL [None]
  - ABDOMINAL PAIN [None]
  - CARDIAC MURMUR [None]
  - FALL [None]
  - GASTRITIS [None]
  - MELAENA [None]
  - TOOTH FRACTURE [None]
  - SKELETAL INJURY [None]
  - HYPOTHYROIDISM [None]
  - URINARY TRACT INFECTION [None]
  - VERTEBROBASILAR INSUFFICIENCY [None]
  - DENTAL CARIES [None]
